FAERS Safety Report 9075254 (Version 1)
Quarter: 2013Q1

REPORT INFORMATION
  Report Type: Spontaneous
  Country: BR (occurrence: BR)
  Receive Date: 20130129
  Receipt Date: 20130129
  Transmission Date: 20140127
  Serious: Yes (Death, Hospitalization, Other)
  Sender: FDA-Public Use
  Company Number: BR-AMGEN-BRASP2012003458

PATIENT
  Age: 61 Year
  Sex: Male

DRUGS (3)
  1. ENBREL [Suspect]
     Indication: RHEUMATOID ARTHRITIS
     Dosage: 50 MG, 1X/WEEK
     Route: 058
     Dates: start: 20100803, end: 20111109
  2. ARAVA [Concomitant]
     Dosage: UNK
  3. REUQUINOL [Concomitant]
     Dosage: UNK

REACTIONS (5)
  - Death [Fatal]
  - Hepatic cancer [Unknown]
  - Decreased appetite [Unknown]
  - Eating disorder [Unknown]
  - General physical health deterioration [Unknown]
